FAERS Safety Report 10847179 (Version 1)
Quarter: 2015Q1

REPORT INFORMATION
  Report Type: Spontaneous
  Country: US (occurrence: US)
  Receive Date: 20150220
  Receipt Date: 20150220
  Transmission Date: 20150721
  Serious: Yes (Hospitalization)
  Sender: FDA-Public Use
  Company Number: US-ASTRAZENECA-2015SE14172

PATIENT
  Age: 142 Day
  Sex: Male
  Weight: 5.9 kg

DRUGS (6)
  1. SYNAGIS [Suspect]
     Active Substance: PALIVIZUMAB
     Indication: SPINAL MUSCULAR ATROPHY
     Route: 030
     Dates: start: 20141203
  2. SYNAGIS [Suspect]
     Active Substance: PALIVIZUMAB
     Indication: SPINAL MUSCULAR ATROPHY
     Route: 030
     Dates: start: 20141212, end: 20150104
  3. SYNAGIS [Suspect]
     Active Substance: PALIVIZUMAB
     Indication: SPINAL MUSCULAR ATROPHY
     Route: 030
     Dates: start: 20150109
  4. SYNAGIS [Suspect]
     Active Substance: PALIVIZUMAB
     Indication: HYPOTONIA
     Route: 030
     Dates: start: 20141212, end: 20150104
  5. SYNAGIS [Suspect]
     Active Substance: PALIVIZUMAB
     Indication: HYPOTONIA
     Route: 030
     Dates: start: 20141203
  6. SYNAGIS [Suspect]
     Active Substance: PALIVIZUMAB
     Indication: HYPOTONIA
     Route: 030
     Dates: start: 20150109

REACTIONS (2)
  - Retching [Recovered/Resolved]
  - Cough [Recovered/Resolved]

NARRATIVE: CASE EVENT DATE: 20150206
